FAERS Safety Report 13765812 (Version 2)
Quarter: 2017Q3

REPORT INFORMATION
  Report Type: Report from Study
  Country: None (occurrence: US)
  Receive Date: 20170718
  Receipt Date: 20170719
  Transmission Date: 20171127
  Serious: Yes (Hospitalization)
  Sender: FDA-Public Use
  Company Number: US-ABBVIE-17P-163-2036903-00

PATIENT
  Sex: Male

DRUGS (1)
  1. DUOPA [Suspect]
     Active Substance: CARBIDOPA\LEVODOPA
     Indication: PARKINSON^S DISEASE
     Route: 050
     Dates: start: 201510

REACTIONS (5)
  - Urinary tract infection [Recovering/Resolving]
  - Stoma site discharge [Not Recovered/Not Resolved]
  - Stoma site reaction [Unknown]
  - Scab [Unknown]
  - Stoma site irritation [Unknown]
